FAERS Safety Report 24244626 (Version 1)
Quarter: 2024Q3

REPORT INFORMATION
  Report Type: Spontaneous
  Country: US (occurrence: None)
  Receive Date: 20240823
  Receipt Date: 20240823
  Transmission Date: 20241016
  Serious: No
  Sender: EMMAUS LIFE SCIENCES
  Company Number: US-Emmaus Medical, Inc.-EMM202404-000189

PATIENT
  Age: 37 Year
  Sex: Female

DRUGS (2)
  1. ENDARI [Suspect]
     Active Substance: GLUTAMINE
     Indication: Thalassaemia sickle cell
     Dosage: 10 G
     Route: 048
     Dates: start: 202403
  2. ENDARI [Suspect]
     Active Substance: GLUTAMINE
     Indication: Haemoglobin C disease

REACTIONS (5)
  - Flatulence [Unknown]
  - Abdominal distension [Unknown]
  - Constipation [Unknown]
  - Headache [Unknown]
  - Back pain [Unknown]

NARRATIVE: CASE EVENT DATE: 20240101
